FAERS Safety Report 21062386 (Version 2)
Quarter: 2022Q3

REPORT INFORMATION
  Report Type: Spontaneous
  Country: SE (occurrence: SE)
  Receive Date: 20220711
  Receipt Date: 20220713
  Transmission Date: 20221026
  Serious: Yes (Hospitalization)
  Sender: FDA-Public Use
  Company Number: None

PATIENT
  Age: 62 Year
  Sex: Female
  Weight: 83 kg

DRUGS (11)
  1. PALIPERIDONE PALMITATE [Suspect]
     Active Substance: PALIPERIDONE PALMITATE
     Indication: Bipolar I disorder
     Route: 030
     Dates: start: 20210324
  2. PALIPERIDONE PALMITATE [Suspect]
     Active Substance: PALIPERIDONE PALMITATE
  3. PALIPERIDONE PALMITATE [Suspect]
     Active Substance: PALIPERIDONE PALMITATE
  4. CHOLECALCIFEROL [Concomitant]
     Active Substance: CHOLECALCIFEROL
     Dosage: 1X1TV
     Dates: start: 20210203
  5. PROMETHAZINE HYDROCHLORIDE\THIOUREA [Concomitant]
     Active Substance: PROMETHAZINE HYDROCHLORIDE\THIOUREA
     Dosage: 1 KL20 VB
     Dates: start: 20171110
  6. IMOVANE [Concomitant]
     Active Substance: ZOPICLONE
     Dosage: 1 KL22 VB
     Dates: start: 20200901
  7. ZYPREXA [Concomitant]
     Active Substance: OLANZAPINE
     Dosage: 2 TNVB
     Dates: start: 20210420
  8. ZYPREXA [Concomitant]
     Active Substance: OLANZAPINE
     Dosage: 1-2VB MAX 2/D
     Dates: start: 20210920
  9. ACETAMINOPHEN [Concomitant]
     Active Substance: ACETAMINOPHEN
     Dosage: 1-2VB, MAX6/D
     Dates: start: 20200908
  10. HISTOGENOL [Concomitant]
     Dosage: 1X2 I 7D
     Dates: start: 20220531, end: 20220606
  11. LITHIUM SULFATE [Concomitant]
     Active Substance: LITHIUM SULFATE
     Dosage: 2 KL08+2 KL20 TV
     Dates: start: 20210218, end: 20220601

REACTIONS (8)
  - Postural tremor [Recovering/Resolving]
  - Muscle rigidity [Recovering/Resolving]
  - Bradykinesia [Recovering/Resolving]
  - Urinary incontinence [Recovering/Resolving]
  - Speech disorder developmental [Recovering/Resolving]
  - Reduced facial expression [Recovering/Resolving]
  - Slow speech [Recovering/Resolving]
  - Off label use [Unknown]

NARRATIVE: CASE EVENT DATE: 20210324
